FAERS Safety Report 22607355 (Version 1)
Quarter: 2023Q2

REPORT INFORMATION
  Report Type: Report from Study
  Country: CA (occurrence: CA)
  Receive Date: 20230616
  Receipt Date: 20230616
  Transmission Date: 20230722
  Serious: Yes (Other)
  Sender: FDA-Public Use
  Company Number: CA-ABBVIE-5291517

PATIENT
  Age: 59 Year
  Sex: Female

DRUGS (2)
  1. RINVOQ [Suspect]
     Active Substance: UPADACITINIB
     Indication: Psoriatic arthropathy
     Dosage: 15MG
     Route: 048
     Dates: start: 20210921
  2. TRAZODONE [Concomitant]
     Active Substance: TRAZODONE HYDROCHLORIDE
     Indication: Product used for unknown indication

REACTIONS (8)
  - Epilepsy [Unknown]
  - Epicondylitis [Unknown]
  - Headache [Unknown]
  - Sinusitis [Unknown]
  - Abdominal distension [Unknown]
  - Chest pain [Unknown]
  - Joint swelling [Unknown]
  - Fall [Unknown]

NARRATIVE: CASE EVENT DATE: 20230101
